FAERS Safety Report 21793051 (Version 2)
Quarter: 2025Q1

REPORT INFORMATION
  Report Type: Report from Study
  Country: CA (occurrence: None)
  Receive Date: 20221229
  Receipt Date: 20250204
  Transmission Date: 20250408
  Serious: Yes (Other)
  Sender: ORION
  Company Number: CA-PFIZER INC-202201395608

PATIENT
  Age: 65 Year
  Sex: Male

DRUGS (3)
  1. METHOTREXATE [Suspect]
     Active Substance: METHOTREXATE
     Indication: Product used for unknown indication
  2. ADALIMUMAB [Suspect]
     Active Substance: ADALIMUMAB
     Indication: Rheumatoid arthritis
  3. HYRIMOZ [Suspect]
     Active Substance: ADALIMUMAB-ADAZ
     Indication: Rheumatoid arthritis

REACTIONS (5)
  - Ear congestion [Not Recovered/Not Resolved]
  - Muscular weakness [Not Recovered/Not Resolved]
  - Syncope [Not Recovered/Not Resolved]
  - General physical health deterioration [Not Recovered/Not Resolved]
  - Pain [Not Recovered/Not Resolved]
